FAERS Safety Report 6878688-5 (Version None)
Quarter: 2010Q3

REPORT INFORMATION
  Report Type: 
  Country: None (occurrence: None)
  Receive Date: 20100728
  Receipt Date: 20100719
  Transmission Date: 20110219
  Serious: Yes (Hospitalization)
  Sender: FDA-Public Use
  Company Number: B0666003A

PATIENT
  Sex: Male

DRUGS (6)
  1. TRIZIVIR [Suspect]
     Indication: HIV INFECTION
     Route: 048
     Dates: start: 20091123, end: 20091126
  2. GLUCOPHAGE [Suspect]
     Indication: DIABETES MELLITUS
     Route: 048
     Dates: start: 20091110, end: 20091126
  3. BACTRIM [Suspect]
     Indication: PROPHYLAXIS
     Route: 048
     Dates: start: 20091117, end: 20091126
  4. KALETRA [Concomitant]
     Indication: HIV INFECTION
     Route: 048
     Dates: start: 20091123
  5. AMOXICILLIN AND CLAVULANATE POTASSIUM [Concomitant]
     Indication: EAR INFECTION
     Route: 048
     Dates: start: 20091124, end: 20091204
  6. OFLOCET [Concomitant]
     Indication: EAR INFECTION
     Route: 001
     Dates: start: 20091125, end: 20091205

REACTIONS (11)
  - BILIRUBIN CONJUGATED INCREASED [None]
  - BLOOD BILIRUBIN INCREASED [None]
  - BLOOD CREATINE PHOSPHOKINASE INCREASED [None]
  - DRUG HYPERSENSITIVITY [None]
  - EAR INFECTION [None]
  - HYPONATRAEMIA [None]
  - LACTIC ACIDOSIS [None]
  - MUSCULOSKELETAL PAIN [None]
  - PYREXIA [None]
  - RENAL FAILURE ACUTE [None]
  - TRANSAMINASES INCREASED [None]
